FAERS Safety Report 7363714-X (Version None)
Quarter: 2011Q1

REPORT INFORMATION
  Report Type: 
  Country: None (occurrence: None)
  Receive Date: 20110321
  Receipt Date: 20110311
  Transmission Date: 20110831
  Serious: Yes (Other)
  Sender: FDA-Public Use
  Company Number: US-JNJFOC-20110306411

PATIENT
  Age: 29 Year
  Sex: Female
  Weight: 52.62 kg

DRUGS (2)
  1. UNSPECIFIED BIRTH CONTROL [Suspect]
     Indication: CONTRACEPTION
     Route: 061
  2. RETIN-A MICRO [Suspect]
     Indication: ACNE
     Dosage: DOSAGE-PEA SIZE
     Route: 061

REACTIONS (4)
  - BURNING SENSATION [None]
  - SKIN EXFOLIATION [None]
  - CHEMICAL INJURY [None]
  - ERYTHEMA [None]
